FAERS Safety Report 5909439-6 (Version None)
Quarter: 2008Q4

REPORT INFORMATION
  Report Type: 
  Country: None (occurrence: None)
  Receive Date: 20081006
  Receipt Date: 20080929
  Transmission Date: 20090506
  Serious: Yes (Hospitalization)
  Sender: FDA-Public Use
  Company Number: GB-PFIZER INC-2008081675

PATIENT
  Age: 51 Year
  Sex: Female

DRUGS (2)
  1. FLUCONAZOLE [Suspect]
     Indication: VULVOVAGINAL CANDIDIASIS
     Dosage: TEXT:150 MG
     Route: 048
     Dates: start: 20080826, end: 20080826
  2. FEMOSTON ^SOLVAY^ [Concomitant]
     Indication: HORMONE REPLACEMENT THERAPY
     Dates: start: 20080321

REACTIONS (1)
  - MUCOSAL ULCERATION [None]
